FAERS Safety Report 7537748-6 (Version None)
Quarter: 2011Q2

REPORT INFORMATION
  Report Type: 
  Country: None (occurrence: None)
  Receive Date: 20110609
  Receipt Date: 20110606
  Transmission Date: 20111010
  Serious: Yes (Other)
  Sender: FDA-Public Use
  Company Number: US-PFIZER INC-2011123078

PATIENT
  Sex: Female
  Weight: 79.365 kg

DRUGS (1)
  1. ADVIL LIQUI-GELS [Suspect]
     Indication: PAIN
     Dosage: 400 MG, 2X/DAY
     Route: 048
     Dates: start: 20110602, end: 20110605

REACTIONS (7)
  - NAUSEA [None]
  - CONDITION AGGRAVATED [None]
  - VOMITING [None]
  - FEELING ABNORMAL [None]
  - DIZZINESS [None]
  - ANGIOPATHY [None]
  - CHEST PAIN [None]
